FAERS Safety Report 20899452 (Version 1)
Quarter: 2022Q2

REPORT INFORMATION
  Report Type: Report from Study
  Country: JP (occurrence: JP)
  Receive Date: 20220601
  Receipt Date: 20220601
  Transmission Date: 20220721
  Serious: Yes (Other)
  Sender: FDA-Public Use
  Company Number: JP-JNJFOC-20220551230

PATIENT

DRUGS (2)
  1. ERLEADA [Suspect]
     Active Substance: APALUTAMIDE
     Indication: Hormone-refractory prostate cancer
     Dosage: 240 MG, 180 MG, 120 MG
     Route: 048
  2. ERLEADA [Suspect]
     Active Substance: APALUTAMIDE
     Indication: Hormone-dependent prostate cancer

REACTIONS (4)
  - Acute generalised exanthematous pustulosis [Unknown]
  - Skin disorder [Unknown]
  - Fatigue [Unknown]
  - Adverse event [Unknown]
